FAERS Safety Report 11987539 (Version 2)
Quarter: 2016Q1

REPORT INFORMATION
  Report Type: Report from Study
  Country: US (occurrence: US)
  Receive Date: 20160202
  Receipt Date: 20160315
  Transmission Date: 20160526
  Serious: No
  Sender: FDA-Public Use
  Company Number: PHEH2016US002431

PATIENT
  Age: 55 Year
  Sex: Female
  Weight: 92.97 kg

DRUGS (1)
  1. GILENYA [Suspect]
     Active Substance: FINGOLIMOD HYDROCHLORIDE
     Indication: MULTIPLE SCLEROSIS
     Dosage: 0.5 MG, QD
     Route: 048
     Dates: start: 20151012

REACTIONS (1)
  - Weight increased [Unknown]

NARRATIVE: CASE EVENT DATE: 201512
